FAERS Safety Report 4900364-6 (Version None)
Quarter: 2006Q1

REPORT INFORMATION
  Report Type: 
  Country: None (occurrence: None)
  Receive Date: 20060203
  Receipt Date: 20060131
  Transmission Date: 20060701
  Serious: Yes (Death, Hospitalization)
  Sender: FDA-Public Use
  Company Number: US-BRISTOL-MYERS SQUIBB COMPANY-13265848

PATIENT
  Age: 69 Year
  Sex: Male
  Weight: 67 kg

DRUGS (9)
  1. ERBITUX [Suspect]
     Indication: NON-SMALL CELL LUNG CANCER
     Dosage: 400 MG/KG.  WAS TO RECEIVE 704 MG BUT REACTION OCCURRED WITHIN 5 MINUTES/RECEIVED 30 CC'S.
     Route: 042
     Dates: start: 20060130, end: 20060130
  2. AMITRIPTYLINE HCL [Concomitant]
     Indication: DEPRESSION
     Dates: start: 19900101, end: 20060130
  3. BENADRYL [Concomitant]
     Indication: PREMEDICATION
     Dates: start: 20060130, end: 20060130
  4. DECADRON [Concomitant]
     Indication: PREMEDICATION
     Dosage: ADMINISTERED VIA (1)-10 MG AND (1)-4 MG DOSE.
     Dates: start: 20060130, end: 20060130
  5. ENALAPRIL [Concomitant]
     Indication: HYPERTENSION
     Dates: start: 19900101, end: 20060130
  6. QUINIDINE HCL [Concomitant]
     Indication: MUSCLE SPASMS
     Dates: start: 19900101, end: 20060130
  7. LASIX [Concomitant]
     Indication: FLUID RETENTION
     Dates: start: 20050201, end: 20060130
  8. LOVASTATIN [Concomitant]
     Indication: HYPERCHOLESTEROLAEMIA
     Dates: start: 20050201, end: 20060130
  9. METOPROLOL [Concomitant]
     Indication: HYPERTENSION
     Dates: start: 19900101, end: 20060130

REACTIONS (2)
  - CARDIO-RESPIRATORY ARREST [None]
  - HYPERSENSITIVITY [None]
